FAERS Safety Report 4391528-1 (Version None)
Quarter: 2004Q3

REPORT INFORMATION
  Report Type: 
  Country: None (occurrence: None)
  Receive Date: 20040701
  Receipt Date: 20040616
  Transmission Date: 20050211
  Serious: Yes (Hospitalization)
  Sender: FDA-Public Use
  Company Number: 193150

PATIENT
  Age: 50 Year
  Sex: Female
  Weight: 77.1115 kg

DRUGS (6)
  1. AVONEX [Suspect]
     Indication: MULTIPLE SCLEROSIS
     Dosage: 30 MCG QW IM
     Route: 030
     Dates: end: 20030501
  2. AVONEX [Suspect]
     Indication: MULTIPLE SCLEROSIS
     Dates: start: 20040301
  3. BUTALBITAL [Concomitant]
  4. METHOTREXATE [Concomitant]
  5. AMBIEN [Concomitant]
  6. LEVAQUIN [Concomitant]

REACTIONS (9)
  - ANAEMIA [None]
  - DRUG INEFFECTIVE [None]
  - HYPERTENSION [None]
  - HYSTERECTOMY [None]
  - INSOMNIA [None]
  - MULTIPLE SCLEROSIS RELAPSE [None]
  - MUSCLE SPASMS [None]
  - MYELOPATHY [None]
  - URINARY RETENTION [None]
